FAERS Safety Report 20446293 (Version 1)
Quarter: 2022Q1

REPORT INFORMATION
  Report Type: Spontaneous
  Country: US (occurrence: US)
  Receive Date: 20220208
  Receipt Date: 20220208
  Transmission Date: 20220423
  Serious: No
  Sender: FDA-Public Use
  Company Number: US-ORGANON-O2202USA000264

PATIENT
  Age: 64 Year
  Sex: Male

DRUGS (3)
  1. SINGULAIR [Suspect]
     Active Substance: MONTELUKAST SODIUM
     Dosage: UNK
     Route: 048
  2. DUPIXENT [Suspect]
     Active Substance: DUPILUMAB
     Indication: Asthma
     Dosage: 600 MILLIGRAM, ONCE (1X)
     Route: 058
     Dates: start: 20201124, end: 20201124
  3. DUPIXENT [Suspect]
     Active Substance: DUPILUMAB
     Dosage: 300 MILLIGRAM, EVERY OTHER WEEK
     Route: 058
     Dates: start: 20211117

REACTIONS (2)
  - Adverse drug reaction [Unknown]
  - COVID-19 [Recovered/Resolved]
